FAERS Safety Report 18299555 (Version 1)
Quarter: 2020Q3

REPORT INFORMATION
  Report Type: Spontaneous
  Country: US (occurrence: US)
  Receive Date: 20200922
  Receipt Date: 20200922
  Transmission Date: 20201103
  Serious: Yes (Disabling, Other)
  Sender: FDA-Public Use
  Company Number: US-PURDUE-USA-2020-0166656

PATIENT
  Sex: Male

DRUGS (1)
  1. OXYCONTIN [Suspect]
     Active Substance: OXYCODONE HYDROCHLORIDE
     Indication: PRODUCT USED FOR UNKNOWN INDICATION
     Dosage: 80 MG, QID
     Route: 048
     Dates: start: 2004, end: 2016

REACTIONS (19)
  - Drug dependence [Unknown]
  - Decubitus ulcer [Unknown]
  - Dizziness [Unknown]
  - Megacolon [Unknown]
  - Dry mouth [Unknown]
  - Anxiety [Unknown]
  - Retinal detachment [Unknown]
  - Tooth injury [Unknown]
  - Gastrointestinal motility disorder [Not Recovered/Not Resolved]
  - Pulmonary function test decreased [Unknown]
  - Constipation [Unknown]
  - Dementia [Unknown]
  - Diarrhoea [Unknown]
  - Urinary incontinence [Unknown]
  - Skin discolouration [Unknown]
  - Blindness [Unknown]
  - Neuropathy peripheral [Unknown]
  - Oedema [Unknown]
  - Mobility decreased [Unknown]
